FAERS Safety Report 16726950 (Version 1)
Quarter: 2019Q3

REPORT INFORMATION
  Report Type: Spontaneous
  Country: JP (occurrence: JP)
  Receive Date: 20190821
  Receipt Date: 20190821
  Transmission Date: 20191005
  Serious: Yes (Other)
  Sender: FDA-Public Use
  Company Number: JP-CELGENEUS-JPN-20190806531

PATIENT
  Sex: Male

DRUGS (2)
  1. OTEZLA [Suspect]
     Active Substance: APREMILAST
     Indication: PSORIASIS
     Dosage: UPWARD TITRATION
     Route: 048
     Dates: start: 201908
  2. SEIROGAN [Concomitant]
     Indication: DIARRHOEA
     Dosage: UNKNOWN
     Route: 065
     Dates: start: 2019

REACTIONS (5)
  - Urticaria [Unknown]
  - Dizziness [Unknown]
  - Skin exfoliation [Unknown]
  - Pollakiuria [Unknown]
  - Frequent bowel movements [Unknown]

NARRATIVE: CASE EVENT DATE: 201908
